FAERS Safety Report 8509175-6 (Version None)
Quarter: 2012Q3

REPORT INFORMATION
  Report Type: 
  Country: None (occurrence: None)
  Receive Date: 20120713
  Receipt Date: 20120706
  Transmission Date: 20120928
  Serious: Yes (Hospitalization)
  Sender: FDA-Public Use
  Company Number: US-BAYER-2012-024434

PATIENT
  Age: 40 Year
  Sex: Female

DRUGS (11)
  1. ACETAMINOPHEN [Concomitant]
     Dosage: 2 TABS PRN ( INTERPRETED AS NEEDED)
     Route: 048
     Dates: start: 20110303
  2. FLAGYL [Concomitant]
     Dosage: UNK
     Dates: start: 20101202
  3. SULFAMETHOXAZOLE AND TRIMETHOPRIM [Concomitant]
     Dosage: TAKE 1 TABLET TWICE DAILY
     Route: 048
     Dates: start: 20101218
  4. ZOMIG [Concomitant]
     Indication: HEADACHE
     Dosage: TAKE 2 TABLETS, 10 MG AS DIRECTED
     Route: 048
     Dates: start: 20110103
  5. YAZ [Suspect]
     Dosage: UNK
     Dates: start: 20101101, end: 20110301
  6. DROSPIRENONE AND ETHINYL ESTRADIOL [Suspect]
     Dosage: UNK
     Dates: start: 20101201, end: 20110301
  7. YASMIN [Suspect]
     Indication: PRODUCT USED FOR UNKNOWN INDICATION
     Dosage: UNK
     Dates: start: 20101101, end: 20110301
  8. METRONIDAZOLE [Concomitant]
     Dosage: 250MG TABLETS; TAKE ONE TABLET TWICE DAILY
     Route: 048
     Dates: start: 20101202
  9. ACETAMINOPHEN [Concomitant]
  10. YAZ [Suspect]
     Indication: PRODUCT USED FOR UNKNOWN INDICATION
     Dosage: UNK
     Dates: start: 20100928
  11. ZANAFLEX [Concomitant]
     Dosage: 4MG; TAKE ONE CAPSULE TWICE
     Route: 048
     Dates: start: 20110103

REACTIONS (4)
  - PAIN IN EXTREMITY [None]
  - CHEST PAIN [None]
  - QUALITY OF LIFE DECREASED [None]
  - DEEP VEIN THROMBOSIS [None]
